FAERS Safety Report 12759258 (Version 2)
Quarter: 2016Q4

REPORT INFORMATION
  Report Type: Report from Study
  Country: KR (occurrence: KR)
  Receive Date: 20160919
  Receipt Date: 20161115
  Transmission Date: 20170207
  Serious: Yes (Hospitalization)
  Sender: FDA-Public Use
  Company Number: KR-ALEXION PHARMACEUTICALS INC.-A201606785

PATIENT
  Age: 49 Year
  Sex: Male
  Weight: 59.35 kg

DRUGS (10)
  1. SOLIRIS [Suspect]
     Active Substance: ECULIZUMAB
     Dosage: 900 MG, Q2W
     Route: 042
     Dates: start: 20130313
  2. CEFTRIAXON [Concomitant]
     Active Substance: CEFTRIAXONE
     Indication: HEADACHE
  3. CEFTRIAXON [Concomitant]
     Active Substance: CEFTRIAXONE
     Indication: ANTIBIOTIC PROPHYLAXIS
     Dosage: 2 G, QD
     Route: 042
     Dates: start: 20160906, end: 20160909
  4. FOLIC ACID. [Concomitant]
     Active Substance: FOLIC ACID
     Indication: IRON DEFICIENCY ANAEMIA
     Dosage: 1 MG, UNK
     Route: 048
     Dates: start: 20160908, end: 20160914
  5. DIFLUCORTOLONE VALERATE [Concomitant]
     Active Substance: DIFLUCORTOLONE VALERATE
     Indication: PETECHIAE
     Dosage: 10 G, UNK
     Route: 065
     Dates: start: 20160908, end: 20160913
  6. ASPIRIN. [Concomitant]
     Active Substance: ASPIRIN
     Indication: PROPHYLAXIS
     Dosage: 100 MG, UNK
     Route: 048
     Dates: start: 20160908, end: 20160914
  7. CEFTRIAXON [Concomitant]
     Active Substance: CEFTRIAXONE
     Indication: MUSCULOSKELETAL STIFFNESS
  8. BISOPROLOL [Concomitant]
     Active Substance: BISOPROLOL
     Indication: HYPERTENSION
     Dosage: 1.25 MG, UNK
     Route: 048
     Dates: start: 20160908, end: 20160914
  9. SOLIRIS [Suspect]
     Active Substance: ECULIZUMAB
     Indication: PAROXYSMAL NOCTURNAL HAEMOGLOBINURIA
     Dosage: 600 MG, QW
     Route: 042
     Dates: start: 20130213, end: 20130306
  10. CEFTRIAXON [Concomitant]
     Active Substance: CEFTRIAXONE
     Indication: PYREXIA

REACTIONS (4)
  - Headache [Recovered/Resolved]
  - Confusional state [Recovered/Resolved with Sequelae]
  - Pyrexia [Recovered/Resolved with Sequelae]
  - Musculoskeletal stiffness [Recovered/Resolved with Sequelae]

NARRATIVE: CASE EVENT DATE: 20160904
